FAERS Safety Report 9297218 (Version 2)
Quarter: 2013Q2

REPORT INFORMATION
  Report Type: Spontaneous
  Country: US (occurrence: US)
  Receive Date: 20130520
  Receipt Date: 20130620
  Transmission Date: 20140414
  Serious: Yes (Hospitalization)
  Sender: FDA-Public Use
  Company Number: US-BIOGENIDEC-2013BI043536

PATIENT
  Age: 32 Year
  Sex: Male

DRUGS (3)
  1. AVONEX [Suspect]
     Indication: MULTIPLE SCLEROSIS
     Route: 030
     Dates: start: 20121126, end: 201212
  2. AVONEX [Suspect]
     Indication: MULTIPLE SCLEROSIS
     Route: 030
     Dates: start: 201212
  3. POTASSIUM [Concomitant]
     Dates: start: 201304

REACTIONS (6)
  - Abasia [Recovered/Resolved]
  - Device related infection [Unknown]
  - Multiple sclerosis [Not Recovered/Not Resolved]
  - Hypertension [Unknown]
  - Blood glucose increased [Unknown]
  - Gait disturbance [Not Recovered/Not Resolved]
